FAERS Safety Report 6273507-2 (Version None)
Quarter: 2009Q3

REPORT INFORMATION
  Report Type: 
  Country: None (occurrence: None)
  Receive Date: 20090716
  Receipt Date: 20090713
  Transmission Date: 20100115
  Serious: Yes (Disabling)
  Sender: FDA-Public Use
  Company Number: 2009-199573-NL

PATIENT
  Age: 52 Year
  Sex: Male

DRUGS (4)
  1. VECURONIUM BROMIDE [Suspect]
     Indication: MUSCLE RELAXANT THERAPY
     Dosage: 50 MG
     Route: 042
     Dates: start: 20080123, end: 20080125
  2. MEROPENEM TRIHYDRATE [Concomitant]
  3. ERYTHROMYCIN LACTOBINATE [Concomitant]
  4. PREDNISOLONE [Concomitant]

REACTIONS (10)
  - CARDIO-RESPIRATORY ARREST [None]
  - DIALYSIS [None]
  - DILATATION VENTRICULAR [None]
  - PNEUMOCOCCAL INFECTION [None]
  - PULMONARY EMBOLISM [None]
  - RENAL FAILURE [None]
  - RHABDOMYOLYSIS [None]
  - RIGHT ATRIAL DILATATION [None]
  - SHOCK [None]
  - SPUTUM CULTURE POSITIVE [None]
